FAERS Safety Report 25934101 (Version 1)
Quarter: 2025Q4

REPORT INFORMATION
  Report Type: Spontaneous
  Country: EU (occurrence: EU)
  Receive Date: 20251017
  Receipt Date: 20251017
  Transmission Date: 20260117
  Serious: Yes (Death, Other)
  Sender: BRISTOL-MYERS SQUIBB COMPANY
  Company Number: None

PATIENT
  Age: 70 Year
  Sex: Male
  Weight: 81 kg

DRUGS (4)
  1. OPDIVO [Suspect]
     Active Substance: NIVOLUMAB
     Indication: Bronchial carcinoma
     Dates: start: 20250807, end: 20250828
  2. AMIODARONE [Suspect]
     Active Substance: AMIODARONE
     Indication: Atrial fibrillation
     Dates: start: 202505, end: 20250922
  3. CARBOPLATIN [Concomitant]
     Active Substance: CARBOPLATIN
     Indication: Bronchial carcinoma
     Dates: start: 20250807, end: 20250828
  4. PACLITAXEL [Concomitant]
     Active Substance: PACLITAXEL
     Indication: Bronchial carcinoma
     Dates: start: 20250807, end: 20250828

REACTIONS (2)
  - Interstitial lung disease [Fatal]
  - Acute respiratory distress syndrome [Fatal]

NARRATIVE: CASE EVENT DATE: 20250914
